FAERS Safety Report 7419066-X (Version None)
Quarter: 2011Q2

REPORT INFORMATION
  Report Type: 
  Country: None (occurrence: None)
  Receive Date: 20110415
  Receipt Date: 20110401
  Transmission Date: 20111010
  Serious: Yes (Other)
  Sender: FDA-Public Use
  Company Number: JP-CELGENEUS-087-21880-10111946

PATIENT
  Sex: Male
  Weight: 65.2 kg

DRUGS (32)
  1. REVLIMID [Suspect]
     Dosage: 25 MILLIGRAM
     Route: 048
     Dates: start: 20101110, end: 20101130
  2. ASPIRIN [Concomitant]
     Indication: PROPHYLAXIS
     Dosage: 100 MILLIGRAM
     Route: 048
     Dates: start: 20101005, end: 20101218
  3. GOSHA-JINKI-GAN [Concomitant]
     Dosage: 7.5 GRAM
     Route: 048
     Dates: start: 20100727, end: 20110104
  4. SELBEX [Concomitant]
     Indication: PROPHYLAXIS
     Dosage: 100 MILLIGRAM
     Route: 048
     Dates: start: 20100727, end: 20110329
  5. BACTRIM [Concomitant]
     Indication: PROPHYLAXIS
     Dosage: 2 TABLET
     Route: 048
     Dates: start: 20101014, end: 20101109
  6. REVLIMID [Suspect]
     Dosage: 25 MILLIGRAM
     Route: 048
     Dates: start: 20110202, end: 20110222
  7. ASPIRIN [Concomitant]
     Dosage: 100 MILLIGRAM
     Route: 048
     Dates: start: 20110106, end: 20110215
  8. DAI-KENCHU-TO [Concomitant]
     Dosage: 2.5 GRAM
     Route: 048
     Dates: start: 20110105, end: 20110329
  9. BACTRIM [Concomitant]
     Dosage: 2 TABLET
     Route: 048
     Dates: start: 20110106, end: 20110328
  10. REVLIMID [Suspect]
     Indication: MULTIPLE MYELOMA
     Dosage: 25 MILLIGRAM
     Route: 048
     Dates: start: 20101005, end: 20101010
  11. DEXAMETHASONE [Suspect]
     Dosage: 40 MILLIGRAM
     Route: 048
     Dates: start: 20101110, end: 20101129
  12. LAXOBERON [Concomitant]
     Indication: CONSTIPATION
     Dosage: 10 DROPS
     Route: 048
     Dates: start: 20100727, end: 20101109
  13. REVLIMID [Suspect]
     Dosage: 25 MILLIGRAM
     Route: 048
     Dates: start: 20101208, end: 20101228
  14. REVLIMID [Suspect]
     Dosage: 25 MILLIGRAM
     Route: 048
     Dates: start: 20110302
  15. MAGMITT [Concomitant]
     Dosage: 1320 MILLIGRAM
     Route: 048
     Dates: start: 20110105, end: 20110329
  16. DEXAMETHASONE [Suspect]
     Indication: MULTIPLE MYELOMA
     Dosage: 40 MILLIGRAM
     Route: 048
     Dates: start: 20101005, end: 20101008
  17. DEXAMETHASONE [Suspect]
     Dosage: 40 MILLIGRAM
     Route: 048
     Dates: start: 20110105, end: 20110125
  18. GASTER [Concomitant]
     Indication: PROPHYLAXIS
     Dosage: 20 MILLIGRAM
     Route: 048
     Dates: start: 20101001, end: 20110104
  19. GOSHA-JINKI-GAN [Concomitant]
     Dosage: 5 GRAM
     Route: 048
     Dates: start: 20110105, end: 20110329
  20. MAGMITT [Concomitant]
     Indication: CONSTIPATION
     Dosage: 1320 MILLIGRAM
     Route: 048
     Dates: start: 20101001, end: 20101109
  21. BACTRIM [Concomitant]
     Dosage: 4 TABLET
     Route: 048
     Dates: start: 20101110, end: 20110104
  22. KETOPROFEN [Concomitant]
     Route: 062
     Dates: start: 20101012, end: 20101109
  23. DEXAMETHASONE [Suspect]
     Dosage: 40 MILLIGRAM
     Route: 048
     Dates: start: 20110202, end: 20110223
  24. ASPIRIN [Concomitant]
     Dosage: 100 MILLIGRAM
     Route: 048
     Dates: start: 20110101, end: 20110104
  25. LOXONIN [Concomitant]
     Dosage: 10 MILLIGRAM
     Route: 048
     Dates: start: 20100727, end: 20101109
  26. REVLIMID [Suspect]
     Dosage: 25 MILLIGRAM
     Route: 048
     Dates: start: 20110105, end: 20110125
  27. VITAMEDIN [Concomitant]
     Dosage: 2 CAPSULE
     Route: 048
     Dates: start: 20100727, end: 20110329
  28. DAI-KENCHU-TO [Concomitant]
     Indication: CONSTIPATION
     Dosage: 7.5 GRAM
     Route: 048
     Dates: start: 20101001, end: 20110104
  29. REVLIMID [Suspect]
     Dosage: 25 MILLIGRAM
     Route: 048
     Dates: start: 20101015, end: 20101029
  30. DEXAMETHASONE [Suspect]
     Dosage: 40 MILLIGRAM
     Route: 048
     Dates: start: 20101025, end: 20101028
  31. DEXAMETHASONE [Suspect]
     Dosage: 40 MILLIGRAM
     Route: 048
     Dates: start: 20101208, end: 20101229
  32. MAGMITT [Concomitant]
     Dosage: 1980 MILLIGRAM
     Route: 048
     Dates: start: 20101110, end: 20110104

REACTIONS (13)
  - WHITE BLOOD CELL COUNT INCREASED [None]
  - RENAL IMPAIRMENT [None]
  - CONSTIPATION [None]
  - DEEP VEIN THROMBOSIS [None]
  - HEPATIC FUNCTION ABNORMAL [None]
  - WHITE BLOOD CELL COUNT DECREASED [None]
  - EYE HAEMORRHAGE [None]
  - C-REACTIVE PROTEIN INCREASED [None]
  - PLATELET COUNT DECREASED [None]
  - ANAEMIA [None]
  - DIZZINESS [None]
  - EPISTAXIS [None]
  - INSOMNIA [None]
